FAERS Safety Report 6072933-4 (Version None)
Quarter: 2009Q1

REPORT INFORMATION
  Report Type: 
  Country: None (occurrence: None)
  Receive Date: 20090206
  Receipt Date: 20090108
  Transmission Date: 20090719
  Serious: Yes (Other)
  Sender: FDA-Public Use
  Company Number: 230257K09USA

PATIENT
  Age: 37 Year
  Sex: Female

DRUGS (3)
  1. REBIF [Suspect]
     Indication: MULTIPLE SCLEROSIS
     Dosage: 44 MCG, 3 IN 1 WEEKS, SUBCUTANEOUS
     Route: 058
     Dates: start: 20080709
  2. FOLIC ACID [Concomitant]
  3. VITAMIN D (ERGOCALCIFERIFOL) [Concomitant]

REACTIONS (2)
  - ANAEMIA [None]
  - CONDITION AGGRAVATED [None]
